FAERS Safety Report 7086254-4 (Version None)
Quarter: 2010Q4

REPORT INFORMATION
  Report Type: 
  Country: None (occurrence: None)
  Receive Date: 20101027
  Receipt Date: 20101018
  Transmission Date: 20110411
  Serious: Yes (Hospitalization)
  Sender: FDA-Public Use
  Company Number: TPA2010A05413

PATIENT
  Sex: Female

DRUGS (1)
  1. ACTOS [Suspect]
     Dates: end: 20100201

REACTIONS (2)
  - FALL [None]
  - SUBDURAL HAEMORRHAGE [None]
